FAERS Safety Report 10853827 (Version 2)
Quarter: 2015Q2

REPORT INFORMATION
  Report Type: Spontaneous
  Country: US (occurrence: US)
  Receive Date: 20150223
  Receipt Date: 20150507
  Transmission Date: 20150821
  Serious: Yes (Hospitalization)
  Sender: FDA-Public Use
  Company Number: US-AUROBINDO-AUR-APL-2015-01440

PATIENT
  Age: 27 Year
  Sex: Male

DRUGS (11)
  1. ESCITALOPRAM [Suspect]
     Active Substance: ESCITALOPRAM OXALATE
     Indication: PRODUCT USED FOR UNKNOWN INDICATION
     Dosage: 30 MG, DAILY
     Route: 065
  2. BUTALBITAL, ACETAMINOPHEN, AND CAFFEINE [Suspect]
     Active Substance: ACETAMINOPHEN\BUTALBITAL\CAFFEINE
     Indication: PRODUCT USED FOR UNKNOWN INDICATION
     Dosage: 50/325/40 MG, TWO TIMES A DAY
     Route: 065
  3. PREDNISONE. [Suspect]
     Active Substance: PREDNISONE
     Indication: EXPOSURE TO TOXIC AGENT
     Dosage: 40 MG, DAILY
     Route: 048
  4. PROPRANOLOL [Suspect]
     Active Substance: PROPRANOLOL\PROPRANOLOL HYDROCHLORIDE
     Indication: PRODUCT USED FOR UNKNOWN INDICATION
     Dosage: 80 MG, DAILY
     Route: 065
  5. TRIAMCINOLONE [Suspect]
     Active Substance: TRIAMCINOLONE
     Indication: EXPOSURE TO TOXIC AGENT
     Dosage: 0.1 %, TWO TIMES A DAY
     Route: 065
  6. QUETIAPINE 200MG [Suspect]
     Active Substance: QUETIAPINE
     Indication: PRODUCT USED FOR UNKNOWN INDICATION
     Dosage: 200 MG, AT BED TIME
     Route: 065
  7. CLONAZEPAM. [Suspect]
     Active Substance: CLONAZEPAM
     Indication: PRODUCT USED FOR UNKNOWN INDICATION
     Dosage: 1 MG, 3 TIMES A DAY
     Route: 065
  8. PRAZOSIN [Suspect]
     Active Substance: PRAZOSIN
     Indication: PRODUCT USED FOR UNKNOWN INDICATION
     Dosage: 2 MG, AT BED TIME
     Route: 065
  9. ALPRAZOLAM 1MG [Suspect]
     Active Substance: ALPRAZOLAM
     Indication: PRODUCT USED FOR UNKNOWN INDICATION
     Dosage: 1 MG, AT BED TIME
     Route: 065
  10. METAXALONE. [Suspect]
     Active Substance: METAXALONE
     Indication: BACK PAIN
     Dosage: THREE EXTRA TABLETS 7 H EARLIER
     Route: 065
  11. MOMETASONE [Suspect]
     Active Substance: MOMETASONE
     Indication: PRODUCT USED FOR UNKNOWN INDICATION
     Dosage: 50 MCG/ACT 2 SPRAYS DAILY
     Route: 065

REACTIONS (15)
  - Hypotonia [Recovered/Resolved]
  - Drug level above therapeutic [Unknown]
  - Serotonin syndrome [Recovered/Resolved]
  - Hyperreflexia [Recovered/Resolved]
  - Skin warm [Recovered/Resolved]
  - Mental status changes [Recovered/Resolved]
  - Muscle rigidity [Recovered/Resolved]
  - Sinus tachycardia [Recovered/Resolved]
  - Agitation [Recovered/Resolved]
  - Hyperhidrosis [Recovered/Resolved]
  - Overdose [Unknown]
  - Myoclonus [Recovered/Resolved]
  - Clonus [Recovered/Resolved]
  - Blood pressure abnormal [Recovered/Resolved]
  - Confusional state [Recovered/Resolved]
